FAERS Safety Report 26058427 (Version 1)
Quarter: 2025Q4

REPORT INFORMATION
  Report Type: Spontaneous
  Country: EU (occurrence: EU)
  Receive Date: 20251118
  Receipt Date: 20251118
  Transmission Date: 20260117
  Serious: Yes (Other)
  Sender: RANBAXY
  Company Number: EU-AFSSAPS-AVNY2025000127

PATIENT
  Age: 34 Year
  Sex: Female

DRUGS (3)
  1. QUETIAPINE [Suspect]
     Active Substance: QUETIAPINE
     Indication: Product used for unknown indication
     Dosage: UNK
     Route: 048
     Dates: start: 20241216, end: 20241217
  2. MIRTAZAPINE [Suspect]
     Active Substance: MIRTAZAPINE
     Indication: Product used for unknown indication
     Dosage: 150 MILLIGRAM, 1 BLISTER PACK, I.E.
     Route: 048
     Dates: start: 20241216, end: 20241216
  3. MIRTAZAPINE [Suspect]
     Active Substance: MIRTAZAPINE
     Dosage: 2 ? 3 CP
     Route: 048
     Dates: start: 20241217, end: 20241217

REACTIONS (4)
  - Drug use disorder [Unknown]
  - Miosis [Recovered/Resolved]
  - Somnolence [Recovered/Resolved]
  - Aggression [Recovered/Resolved]

NARRATIVE: CASE EVENT DATE: 20241217
